FAERS Safety Report 6235442-5 (Version None)
Quarter: 2009Q2

REPORT INFORMATION
  Report Type: 
  Country: None (occurrence: None)
  Receive Date: 20090618
  Receipt Date: 20090324
  Transmission Date: 20091009
  Serious: No
  Sender: FDA-Public Use
  Company Number: US-ASTRAZENECA-2009UW07523

PATIENT
  Sex: Female
  Weight: 61.2 kg

DRUGS (1)
  1. RHINOCORT [Suspect]
     Indication: MULTIPLE ALLERGIES
     Dosage: 32 UG TWO SPRAYS IN EACH NOSTRIL ONCE A DAY
     Route: 045

REACTIONS (2)
  - RHINORRHOEA [None]
  - SNEEZING [None]
